FAERS Safety Report 9091110 (Version 1)
Quarter: 2013Q1

REPORT INFORMATION
  Report Type: Spontaneous
  Country: IT (occurrence: IT)
  Receive Date: 20130201
  Receipt Date: 20130201
  Transmission Date: 20140127
  Serious: Yes (Other)
  Sender: FDA-Public Use
  Company Number: IT-B.I. PHARMACEUTICALS,INC./RIDGEFIELD-2013-BI-02566BY

PATIENT
  Age: 66 Year
  Sex: Male

DRUGS (5)
  1. PRITOR PLUS [Suspect]
     Dosage: 92.5 MG
     Route: 048
     Dates: start: 20111209, end: 20121208
  2. SOTALOL [Concomitant]
  3. AMLODIPINE [Concomitant]
  4. SIMVASTATIN [Concomitant]
  5. CARDIOASPIRIN [Concomitant]

REACTIONS (2)
  - Hypokalaemia [Not Recovered/Not Resolved]
  - Hyponatraemia [Not Recovered/Not Resolved]
